FAERS Safety Report 22041412 (Version 2)
Quarter: 2023Q1

REPORT INFORMATION
  Report Type: Spontaneous
  Country: PT (occurrence: PT)
  Receive Date: 20230227
  Receipt Date: 20230303
  Transmission Date: 20230418
  Serious: Yes (Disabling)
  Sender: FDA-Public Use
  Company Number: None

PATIENT
  Age: 47 Year
  Sex: Female

DRUGS (5)
  1. PIPERACILLIN SODIUM\TAZOBACTAM SODIUM [Suspect]
     Active Substance: PIPERACILLIN SODIUM\TAZOBACTAM SODIUM
     Indication: Pneumonia
     Dosage: 4500 MG 8/8 H?FORM OF ADMIN. POWDER FOR SOLUTION FOR INFUSION
     Route: 042
     Dates: start: 20230209, end: 20230210
  2. TOPIRAMATE [Concomitant]
     Active Substance: TOPIRAMATE
     Indication: Product used for unknown indication
     Dosage: 50MG/DAY
     Dates: start: 20230202
  3. CLOZAPINE [Concomitant]
     Active Substance: CLOZAPINE
     Indication: Product used for unknown indication
     Dosage: UNIT DOSE - 200 MG?HALF A PILL AT BREAKFAST + ONE AND A HALF PILL AT BEDTIME
     Dates: start: 20230202
  4. BIPERIDEN [Concomitant]
     Active Substance: BIPERIDEN
     Indication: Product used for unknown indication
     Dosage: BIPERIDENE 4R - 1 BREAKFAST + 1 DINNER
     Dates: start: 20230202
  5. PALIPERIDONE PALMITATE [Concomitant]
     Active Substance: PALIPERIDONE PALMITATE
     Indication: Product used for unknown indication
     Dosage: 28 IN 28 DAYS (NEXT DOSE 20/02/2023)?FORM OF ADMIN. PROLONGED-RELEASE SUSPENSION FOR INJECTION
     Dates: start: 20230202

REACTIONS (3)
  - Erythema [Recovered/Resolved]
  - Erythema [Recovered/Resolved]
  - Lip swelling [Recovered/Resolved]

NARRATIVE: CASE EVENT DATE: 20230209
